FAERS Safety Report 6584142-0 (Version None)
Quarter: 2010Q1

REPORT INFORMATION
  Report Type: 
  Country: None (occurrence: None)
  Receive Date: 20100216
  Receipt Date: 20100209
  Transmission Date: 20100710
  Serious: Yes (Other)
  Sender: FDA-Public Use
  Company Number: US-JNJFOC-20100205063

PATIENT
  Age: 47 Year
  Sex: Female
  Weight: 52.16 kg

DRUGS (1)
  1. LEVAQUIN [Suspect]
     Indication: FLANK PAIN
     Route: 048
     Dates: start: 20020717, end: 20020718

REACTIONS (2)
  - GLOSSODYNIA [None]
  - SWOLLEN TONGUE [None]
